FAERS Safety Report 5642077-1 (Version None)
Quarter: 2008Q1

REPORT INFORMATION
  Report Type: 
  Country: None (occurrence: None)
  Receive Date: 20080227
  Receipt Date: 20080215
  Transmission Date: 20080703
  Serious: Yes (Other)
  Sender: FDA-Public Use
  Company Number: AU-PFIZER INC-2008016667

PATIENT
  Sex: Female

DRUGS (7)
  1. CHANTIX [Suspect]
  2. DIAZEPAM [Concomitant]
  3. KALMA [Concomitant]
  4. NEO-MERCAZOLE TAB [Concomitant]
  5. PARIET [Concomitant]
  6. SPIRIVA [Concomitant]
  7. CODEINE PHOSPHATE AND ACETAMINOPHEN [Concomitant]

REACTIONS (8)
  - ABDOMINAL DISTENSION [None]
  - ABDOMINAL PAIN UPPER [None]
  - DIZZINESS [None]
  - DYSPHAGIA [None]
  - HYPERHIDROSIS [None]
  - PAIN IN EXTREMITY [None]
  - PARAESTHESIA [None]
  - PHARYNGOLARYNGEAL PAIN [None]
